FAERS Safety Report 8102095-0 (Version None)
Quarter: 2012Q1

REPORT INFORMATION
  Report Type: 
  Country: None (occurrence: None)
  Receive Date: 20120131
  Receipt Date: 20120126
  Transmission Date: 20120608
  Serious: No
  Sender: FDA-Public Use
  Company Number: US-MERCK-1201USA02287

PATIENT
  Age: 74 Year
  Sex: Male

DRUGS (2)
  1. JANUMET [Suspect]
     Indication: DIABETES MELLITUS
     Route: 048
     Dates: start: 20111230, end: 20120101
  2. INSULIN [Concomitant]
     Route: 065

REACTIONS (2)
  - RASH [None]
  - HERPES ZOSTER [None]
